FAERS Safety Report 7164237-3 (Version None)
Quarter: 2010Q4

REPORT INFORMATION
  Report Type: 
  Country: None (occurrence: None)
  Receive Date: 20101201
  Receipt Date: 20101115
  Transmission Date: 20110411
  Serious: Yes (Congenital Anomaly, Other)
  Sender: FDA-Public Use
  Company Number: DKLU1054212

PATIENT
  Sex: Male

DRUGS (4)
  1. SABRIL [Suspect]
     Indication: PARTIAL SEIZURES
     Dosage: 1000 MG MILLIGRAM(S), DAILY, TRANSPLACENTAL
     Route: 064
  2. FRISIUM (CLOBAZAM) [Suspect]
     Indication: PARTIAL SEIZURES
     Dosage: 20 MG MILLIGRAM(S), DAILY, TRANSPLACENTAL
     Route: 064
  3. LAMOTRIGINE [Suspect]
     Indication: PARTIAL SEIZURES
     Dosage: 500 MG MILLIGRAM(S), DAILY, TRANSPLACENTAL
     Route: 064
  4. TOPAMAX [Suspect]
     Indication: PARTIAL SEIZURES
     Dosage: 800 MG MILLIGRAM(S), DAILY, TRANSPLACENTAL
     Route: 064

REACTIONS (5)
  - CARDIAC MURMUR [None]
  - CONGENITAL HYDRONEPHROSIS [None]
  - DYSMORPHISM [None]
  - HIP DYSPLASIA [None]
  - MATERNAL DRUGS AFFECTING FOETUS [None]
